FAERS Safety Report 22310298 (Version 2)
Quarter: 2023Q2

REPORT INFORMATION
  Report Type: Spontaneous
  Country: US (occurrence: US)
  Receive Date: 20230511
  Receipt Date: 20230525
  Transmission Date: 20230722
  Serious: Yes (Hospitalization)
  Sender: FDA-Public Use
  Company Number: US-TEVA-2023-US-2884605

PATIENT
  Age: 63 Year
  Sex: Male

DRUGS (6)
  1. OLANZAPINE [Suspect]
     Active Substance: OLANZAPINE
     Indication: Bipolar disorder
     Dosage: 20 MILLIGRAM DAILY; ONCE A DAY
     Route: 065
     Dates: start: 201912
  2. AVAPRITINIB [Suspect]
     Active Substance: AVAPRITINIB
     Indication: Gastrointestinal stromal tumour
     Dosage: 300 MILLIGRAM DAILY; ONCE A DAY
     Route: 065
     Dates: start: 202003
  3. AVAPRITINIB [Suspect]
     Active Substance: AVAPRITINIB
     Dosage: 200 MILLIGRAM DAILY; ONCE A DAY
     Route: 065
     Dates: start: 2020
  4. HALOPERIDOL [Concomitant]
     Active Substance: HALOPERIDOL
     Indication: Agitation
     Dosage: 2 MG , ON FIRST HOSPITAL DAY (HD1)
     Route: 065
  5. HALOPERIDOL [Concomitant]
     Active Substance: HALOPERIDOL
     Indication: Patient elopement
     Dosage: 1 MG , ON HD 7
     Route: 042
  6. CARBIDOPA\LEVODOPA [Concomitant]
     Active Substance: CARBIDOPA\LEVODOPA
     Indication: Parkinsonism
     Dosage: ON HD 5
     Route: 065

REACTIONS (6)
  - Neuropsychiatric symptoms [Recovering/Resolving]
  - Parkinsonism [Recovering/Resolving]
  - Encephalopathy [Recovering/Resolving]
  - Mental status changes [Recovering/Resolving]
  - Salivary hypersecretion [Recovering/Resolving]
  - Dysphagia [Recovering/Resolving]

NARRATIVE: CASE EVENT DATE: 20200101
